FAERS Safety Report 9305875 (Version 1)
Quarter: 2013Q2

REPORT INFORMATION
  Report Type: Spontaneous
  Country: CH (occurrence: CH)
  Receive Date: 20130523
  Receipt Date: 20130523
  Transmission Date: 20140414
  Serious: Yes (Other)
  Sender: FDA-Public Use
  Company Number: CH-PFIZER INC-2013089682

PATIENT
  Age: 40 Year
  Sex: Male

DRUGS (2)
  1. LYRICA [Suspect]
     Indication: NEURALGIA
     Dosage: BETWEEN 2X 50 MG AND 2X 75 MG
  2. LYRICA [Suspect]
     Indication: TRIGEMINAL NEURALGIA

REACTIONS (1)
  - Personality change [Unknown]
